FAERS Safety Report 7793032-7 (Version None)
Quarter: 2011Q4

REPORT INFORMATION
  Report Type: 
  Country: None (occurrence: None)
  Receive Date: 20111003
  Receipt Date: 20110921
  Transmission Date: 20120403
  Serious: Yes (Hospitalization)
  Sender: FDA-Public Use
  Company Number: US-ACTELION-A-NJ2011-54418

PATIENT

DRUGS (3)
  1. EPOPROSTENOL SODIUM [Suspect]
     Indication: PULMONARY ARTERIAL HYPERTENSION
     Dosage: 17 NG/KG, PER MIN
     Route: 041
     Dates: start: 20110805
  2. LOVENOX [Concomitant]
  3. SILDENAFIL CITRATE [Concomitant]

REACTIONS (5)
  - FLUSHING [None]
  - PAIN IN JAW [None]
  - STAPHYLOCOCCAL INFECTION [None]
  - INJECTION SITE PRURITUS [None]
  - NAUSEA [None]
